FAERS Safety Report 8005826-3 (Version None)
Quarter: 2011Q4

REPORT INFORMATION
  Report Type: 
  Country: None (occurrence: None)
  Receive Date: 20111223
  Receipt Date: 20111216
  Transmission Date: 20120403
  Serious: Yes (Hospitalization, Other)
  Sender: FDA-Public Use
  Company Number: US-ELI_LILLY_AND_COMPANY-US201109005924

PATIENT
  Age: 42 Year
  Sex: Female
  Weight: 96 kg

DRUGS (22)
  1. M.V.I. [Concomitant]
  2. VITAMIN B COMPLEX CAP [Concomitant]
  3. ATROVENT [Concomitant]
  4. CALCIUM [Concomitant]
  5. RESTASIS [Concomitant]
  6. ALBUTEROL [Concomitant]
  7. KETOCONAZOLE [Concomitant]
  8. GABAPENTIN [Concomitant]
  9. COLACE [Concomitant]
  10. FOLIC ACID [Concomitant]
  11. METOPROLOL SUCCINATE [Concomitant]
  12. SYNTHROID [Concomitant]
  13. VITAMIN D [Concomitant]
  14. FISH OIL [Concomitant]
  15. METFORMIN HCL [Concomitant]
  16. NIZORAL [Concomitant]
  17. MAG-OX [Concomitant]
  18. MURO 128 [Concomitant]
  19. HUMATROPE [Suspect]
     Indication: GROWTH HORMONE DEFICIENCY
     Dosage: 0.2 MG, QD
     Dates: start: 20091101
  20. INTAL [Concomitant]
  21. SYSTANE                            /00678601/ [Concomitant]
  22. DICLOFENAC SODIUM [Concomitant]

REACTIONS (8)
  - ARTHROSCOPY [None]
  - ADRENAL DISORDER [None]
  - KERATECTOMY [None]
  - ANAL FISSURE [None]
  - RECTOCELE [None]
  - CUSHING'S SYNDROME [None]
  - RECTAL TENESMUS [None]
  - GASTROINTESTINAL MOTILITY DISORDER [None]
